FAERS Safety Report 4778109-2 (Version None)
Quarter: 2005Q3

REPORT INFORMATION
  Report Type: 
  Country: None (occurrence: None)
  Receive Date: 20050926
  Receipt Date: 20050914
  Transmission Date: 20060218
  Serious: Yes (Disabling)
  Sender: FDA-Public Use
  Company Number: FI-BRISTOL-MYERS SQUIBB COMPANY-13112677

PATIENT
  Age: 48 Year
  Sex: Female

DRUGS (5)
  1. ABILIFY [Suspect]
     Indication: DRUG DEPENDENCE
     Route: 048
     Dates: start: 20031125, end: 20050709
  2. SURMONTIL [Suspect]
     Indication: INSOMNIA
     Dates: start: 20050608, end: 20050626
  3. SURMONTIL [Suspect]
     Dates: start: 20050627, end: 20050704
  4. METHADONE HCL [Concomitant]
     Dates: start: 19990101
  5. OXAZEPAM [Concomitant]

REACTIONS (2)
  - ARTERIAL THROMBOSIS [None]
  - BLINDNESS [None]
